FAERS Safety Report 5611813-2 (Version None)
Quarter: 2008Q1

REPORT INFORMATION
  Report Type: 
  Country: None (occurrence: None)
  Receive Date: 20080204
  Receipt Date: 20080128
  Transmission Date: 20080703
  Serious: Yes (Life-Threatening)
  Sender: FDA-Public Use
  Company Number: JP-BRACCO-000055

PATIENT
  Age: 73 Year
  Sex: Male

DRUGS (9)
  1. IOPAMIRON [Suspect]
     Indication: COMPUTERISED TOMOGRAM
     Route: 042
     Dates: start: 20071226, end: 20071226
  2. IOPAMIRON [Suspect]
     Indication: HEPATITIS C
     Route: 042
     Dates: start: 20071226, end: 20071226
  3. PLATELETS [Concomitant]
     Dosage: PLATELET TRANSFUSION
     Route: 042
     Dates: start: 20071226
  4. CORTICOSTEROID NOS [Concomitant]
     Dosage: UNSPECIFIED STEROID
     Route: 065
     Dates: start: 20071226
  5. MUCOSTA [Suspect]
     Indication: GASTRITIS
     Route: 048
  6. MYSLEE [Suspect]
     Indication: INSOMNIA
     Route: 048
  7. MAGMITT [Suspect]
     Indication: CONSTIPATION
     Route: 048
  8. LOCOID [Suspect]
     Indication: DERMATITIS
     Route: 061
  9. EVIPROSTAT [Suspect]
     Indication: BENIGN PROSTATIC HYPERPLASIA
     Route: 048

REACTIONS (1)
  - PLATELET COUNT DECREASED [None]
